FAERS Safety Report 17240909 (Version 20)
Quarter: 2025Q4

REPORT INFORMATION
  Report Type: Report from Study
  Country: BR (occurrence: BR)
  Receive Date: 20200107
  Receipt Date: 20251203
  Transmission Date: 20260117
  Serious: Yes (Hospitalization)
  Sender: GLAXOSMITHKLINE
  Company Number: BR-GLAXOSMITHKLINE-BR2016GSK120535

PATIENT
  Age: 29 Year
  Sex: Female
  Weight: 65 kg

DRUGS (13)
  1. BELIMUMAB [Suspect]
     Active Substance: BELIMUMAB
     Indication: Asthma
     Dosage: 600 MG, MO
  2. BELIMUMAB [Suspect]
     Active Substance: BELIMUMAB
     Indication: Systemic lupus erythematosus
     Dosage: 750 MG, Q4W
  3. BELIMUMAB [Suspect]
     Active Substance: BELIMUMAB
     Dosage: UNK,  (5X120)
  4. BELIMUMAB [Suspect]
     Active Substance: BELIMUMAB
     Dosage: UNK, 6X120 MG EVERY 45 DAYS
  5. BELIMUMAB [Suspect]
     Active Substance: BELIMUMAB
     Dosage: UNK, (6X120 MG EVERY 2 MONTHS)
  6. BELIMUMAB [Suspect]
     Active Substance: BELIMUMAB
     Dosage: UNK,  6X120 MG (EXCESSIVE DOSAGE)
  7. BELIMUMAB [Suspect]
     Active Substance: BELIMUMAB
     Dosage: UNK,6X120MG (OTHER DOSES) EVERY 28 DAYS
  8. BELIMUMAB [Suspect]
     Active Substance: BELIMUMAB
     Dosage: 120 MG, Q8W (6 VIALS IV IN 1 HOUR)
  9. AZATHIOPRINE [Concomitant]
     Active Substance: AZATHIOPRINE
     Indication: Product used for unknown indication
     Dosage: UNK
  10. HYDROXYCHLOROQUINE SULFATE [Concomitant]
     Active Substance: HYDROXYCHLOROQUINE SULFATE
     Indication: Product used for unknown indication
     Dosage: UNK
  11. YAZ [Concomitant]
     Active Substance: DROSPIRENONE\ETHINYL ESTRADIOL
     Indication: Contraception
     Dosage: UNK, QD
  12. HYDROXYCHLOROQUINE [Concomitant]
     Active Substance: HYDROXYCHLOROQUINE
     Indication: Product used for unknown indication
     Dosage: 400 MG, WE (5 TIMES)
  13. OZEMPIC [Concomitant]
     Active Substance: SEMAGLUTIDE
     Indication: Product used for unknown indication
     Dosage: UNK, WE

REACTIONS (19)
  - Arthritis [Recovered/Resolved]
  - Myositis [Recovered/Resolved]
  - Arthralgia [Recovered/Resolved]
  - Myalgia [Recovered/Resolved]
  - Decreased immune responsiveness [Recovered/Resolved]
  - Urinary tract infection [Recovered/Resolved]
  - COVID-19 [Recovered/Resolved]
  - Influenza [Recovered/Resolved]
  - Oropharyngeal pain [Recovering/Resolving]
  - Sinusitis [Recovered/Resolved]
  - Nasopharyngitis [Recovered/Resolved]
  - Pain [Recovered/Resolved]
  - Dengue fever [Unknown]
  - Transaminases abnormal [Recovered/Resolved]
  - Inappropriate schedule of product administration [Unknown]
  - Product dose omission issue [Unknown]
  - Product prescribing error [Unknown]
  - Product use in unapproved indication [Unknown]
  - Off label use [Unknown]

NARRATIVE: CASE EVENT DATE: 20160816
